FAERS Safety Report 4363532-0 (Version None)
Quarter: 2004Q2

REPORT INFORMATION
  Report Type: 
  Country: None (occurrence: None)
  Receive Date: 20040517
  Receipt Date: 20040312
  Transmission Date: 20050107
  Serious: No
  Sender: FDA-Public Use
  Company Number: S04-USA-01695-01

PATIENT
  Age: 75 Year
  Sex: Male

DRUGS (9)
  1. NAMENDA [Suspect]
     Indication: DEMENTIA
     Dosage: 5 MG QD PO
     Route: 048
     Dates: start: 20040312
  2. SINEMET [Concomitant]
  3. LEXAPRO [Concomitant]
  4. RISPERDAL [Concomitant]
  5. PEPCID [Concomitant]
  6. PROSCAR [Concomitant]
  7. FLOVENT [Concomitant]
  8. ALBUTEROL [Concomitant]
  9. MIRALAX [Concomitant]

REACTIONS (1)
  - SOMNOLENCE [None]
